FAERS Safety Report 20959955 (Version 1)
Quarter: 2022Q2

REPORT INFORMATION
  Report Type: Report from Study
  Country: JP (occurrence: JP)
  Receive Date: 20220615
  Receipt Date: 20220615
  Transmission Date: 20220720
  Serious: Yes (Other)
  Sender: FDA-Public Use
  Company Number: JP-TEVA-546657ISR

PATIENT
  Age: 57 Year
  Sex: Male
  Weight: 69 kg

DRUGS (1)
  1. MODAFINIL [Suspect]
     Active Substance: MODAFINIL
     Indication: Obstructive sleep apnoea syndrome
     Dosage: 200 MILLIGRAM DAILY;
     Route: 048
     Dates: start: 20131007, end: 201404

REACTIONS (1)
  - Arrhythmia [Unknown]

NARRATIVE: CASE EVENT DATE: 20140101
